FAERS Safety Report 9220342 (Version 8)
Quarter: 2014Q1

REPORT INFORMATION
  Report Type: Report from Study
  Country: US (occurrence: US)
  Receive Date: 20130409
  Receipt Date: 20140102
  Transmission Date: 20141002
  Serious: Yes (Hospitalization)
  Sender: FDA-Public Use
  Company Number: US-PFIZER INC-2013105869

PATIENT
  Age: 58 Year
  Sex: Female
  Weight: 97.14 kg

DRUGS (25)
  1. CELECOXIB [Suspect]
     Indication: OSTEOARTHRITIS
     Dosage: 100 MG, BID
     Route: 048
     Dates: start: 20110301, end: 20130323
  2. NEXIUM [Concomitant]
     Indication: PROPHYLAXIS
     Dosage: 40 MG, 1X/DAY
     Route: 048
     Dates: start: 20130301, end: 20130323
  3. OXYCODONE HYDROCHLORIDE [Concomitant]
     Indication: SCIATICA
     Dosage: UNK
     Dates: start: 1996
  4. POTASSIUM GLUCONATE [Concomitant]
     Indication: MUSCLE SPASMS
     Dosage: UNK
     Dates: start: 2006
  5. ROSUVASTATIN CALCIUM [Concomitant]
     Indication: DYSLIPIDAEMIA
     Dosage: UNK
     Dates: start: 2001
  6. LOVASTATIN [Concomitant]
     Indication: DYSLIPIDAEMIA
     Dosage: UNK
     Dates: start: 2001
  7. LEVOTHYROXINE SODIUM [Concomitant]
     Indication: HYPOTHYROIDISM
     Dosage: UNK
     Dates: start: 1990
  8. CLONAZEPAM [Concomitant]
     Indication: ADJUSTMENT DISORDER WITH ANXIETY
     Dosage: UNK
     Dates: start: 2001
  9. FLUOXETINE HYDROCHLORIDE [Concomitant]
     Indication: DEPRESSION
     Dosage: UNK
     Dates: start: 201006
  10. DEXTROAMPHETAMINE / AMPHETAMINE [Concomitant]
     Indication: ATTENTION DEFICIT/HYPERACTIVITY DISORDER
     Dosage: UNK
     Dates: start: 2001
  11. SIMETHICONE [Concomitant]
     Indication: FLATULENCE
     Dosage: UNK
     Dates: start: 2006
  12. PHENYLEPHRINE HYDROCHLORIDE [Concomitant]
     Indication: NASAL CONGESTION
     Dosage: UNK
     Dates: start: 2007
  13. LOPERAMIDE HYDROCHLORIDE [Concomitant]
     Indication: DIARRHOEA
     Dosage: UNK
     Dates: start: 2010
  14. CENTRUM SILVER WOMENS ULTRA [Concomitant]
     Indication: SUPPLEMENTATION THERAPY
     Dosage: UNK
     Dates: start: 2008
  15. DHEA [Concomitant]
     Indication: SUPPLEMENTATION THERAPY
     Dosage: UNK
     Dates: start: 2010
  16. ALBUTEROL SULFATE [Concomitant]
     Indication: SEASONAL ALLERGY
     Dosage: UNK
     Dates: start: 20110422
  17. HYDROCHLOROTHIAZIDE [Concomitant]
     Indication: HYPERTENSION
     Dosage: UNK
     Dates: start: 20110331
  18. ALLERCLEAR [Concomitant]
     Indication: SEASONAL ALLERGY
     Dosage: UNK
     Dates: start: 20110519
  19. LISINOPRIL [Concomitant]
     Indication: HYPERTENSION
     Dosage: UNK
     Dates: start: 20111001
  20. ATENOLOL [Concomitant]
     Indication: HYPERTENSION
     Dosage: UNK
     Dates: start: 20111001
  21. VITAMIN D [Concomitant]
     Indication: SUPPLEMENTATION THERAPY
     Dosage: UNK
     Dates: start: 20120501
  22. ALLOPURINOL [Concomitant]
     Indication: GOUT
     Dosage: 100 MG, 3X/DAY
     Route: 048
     Dates: start: 20120910
  23. METFORMIN [Concomitant]
     Indication: TYPE 2 DIABETES MELLITUS
     Dosage: UNK
     Dates: start: 20130101
  24. PROCHLORPERAZINE MALEATE [Concomitant]
     Indication: ABDOMINAL DISCOMFORT
     Dosage: UNK
     Dates: start: 20121220
  25. MEGARED OMEGA 3 KRILL OIL [Concomitant]
     Indication: SUPPLEMENTATION THERAPY
     Dosage: UNK
     Dates: start: 201006

REACTIONS (1)
  - Peripheral artery thrombosis [Recovered/Resolved]
